FAERS Safety Report 8839876 (Version 1)
Quarter: 2012Q4

REPORT INFORMATION
  Report Type: Spontaneous
  Country: JP (occurrence: None)
  Receive Date: 20121011
  Receipt Date: 20121011
  Transmission Date: 20130627
  Serious: Yes (Other)
  Sender: FDA-Public Use
  Company Number: TCI2012A05671

PATIENT
  Age: 63 Year
  Sex: Female

DRUGS (5)
  1. TAKEPRON [Suspect]
     Route: 048
     Dates: start: 20110324, end: 20110416
  2. BAYASPIRIN [Concomitant]
  3. AMLODIN (AMLODIPINE BESILATE) [Concomitant]
  4. MICARDIS (TELMISARTAN) [Concomitant]
  5. BIOFERMIN R (STREPTOCOCCUS FAECALIS) [Concomitant]

REACTIONS (2)
  - Hydrocephalus [None]
  - Condition aggravated [None]
